FAERS Safety Report 19349734 (Version 2)
Quarter: 2021Q2

REPORT INFORMATION
  Report Type: Report from Study
  Country: KR (occurrence: KR)
  Receive Date: 20210531
  Receipt Date: 20210605
  Transmission Date: 20210717
  Serious: Yes (Hospitalization, Other)
  Sender: FDA-Public Use
  Company Number: KR-AMGEN INC.-KORCT2021082661

PATIENT
  Age: 68 Year
  Sex: Male

DRUGS (101)
  1. FILGRASTIM [Suspect]
     Active Substance: FILGRASTIM
     Dosage: UNK
     Route: 065
     Dates: start: 20120731, end: 20120731
  2. FILGRASTIM [Suspect]
     Active Substance: FILGRASTIM
     Dosage: UNK
     Route: 065
     Dates: start: 20121204, end: 20121204
  3. FILGRASTIM [Suspect]
     Active Substance: FILGRASTIM
     Dosage: UNK
     Route: 065
     Dates: start: 20130423, end: 20130423
  4. FILGRASTIM [Suspect]
     Active Substance: FILGRASTIM
     Dosage: UNK
     Route: 065
     Dates: start: 20130528, end: 20130528
  5. DECITABINE. [Concomitant]
     Active Substance: DECITABINE
     Dosage: 20 UNK
     Dates: start: 20120619, end: 20120623
  6. DECITABINE. [Concomitant]
     Active Substance: DECITABINE
     Dosage: 20 UNK
     Dates: start: 20120911, end: 20120915
  7. DECITABINE. [Concomitant]
     Active Substance: DECITABINE
     Dosage: 20 UNK
     Dates: start: 20130129, end: 20130202
  8. AMBROXOL [Concomitant]
     Active Substance: AMBROXOL
     Indication: PRODUCT USED FOR UNKNOWN INDICATION
     Dosage: 90 MILLIGRAM
     Dates: start: 20110915, end: 20110926
  9. FLUCONAZOLE. [Concomitant]
     Active Substance: FLUCONAZOLE
     Dosage: 200 MILLIGRAM
     Dates: start: 20120109, end: 20120205
  10. FLUCONAZOLE. [Concomitant]
     Active Substance: FLUCONAZOLE
     Dosage: 200 MILLIGRAM
     Dates: start: 20120619, end: 20120714
  11. LEVOFLOXACIN. [Concomitant]
     Active Substance: LEVOFLOXACIN
     Dosage: 500 MILLIGRAM
     Dates: start: 20120109, end: 20120205
  12. LEVOFLOXACIN. [Concomitant]
     Active Substance: LEVOFLOXACIN
     Dosage: 500 MILLIGRAM
     Dates: start: 20120515, end: 20120618
  13. LEVOFLOXACIN. [Concomitant]
     Active Substance: LEVOFLOXACIN
     Dosage: 500 MILLIGRAM
     Dates: start: 20120619, end: 20120714
  14. LEVOFLOXACIN. [Concomitant]
     Active Substance: LEVOFLOXACIN
     Dosage: 500 MILLIGRAM
     Dates: start: 20130709, end: 20130819
  15. FILGRASTIM [Suspect]
     Active Substance: FILGRASTIM
     Dosage: UNK
     Route: 065
     Dates: start: 20120717, end: 20120717
  16. DECITABINE. [Concomitant]
     Active Substance: DECITABINE
     Dosage: 20 UNK
     Dates: start: 20111017, end: 20111021
  17. DECITABINE. [Concomitant]
     Active Substance: DECITABINE
     Dosage: 20 UNK
     Dates: start: 20121231, end: 20121231
  18. DECITABINE. [Concomitant]
     Active Substance: DECITABINE
     Dosage: 20 UNK
     Dates: start: 20130326, end: 20130330
  19. FLUCONAZOLE. [Concomitant]
     Active Substance: FLUCONAZOLE
     Dosage: 200 MILLIGRAM
     Dates: start: 20121009, end: 20121105
  20. FLUCONAZOLE. [Concomitant]
     Active Substance: FLUCONAZOLE
     Dosage: 200 MILLIGRAM
     Dates: start: 20121106, end: 20121203
  21. FLUCONAZOLE. [Concomitant]
     Active Substance: FLUCONAZOLE
     Dosage: 200 MILLIGRAM
     Dates: start: 20121231, end: 20130129
  22. FLUCONAZOLE. [Concomitant]
     Active Substance: FLUCONAZOLE
     Dosage: 200 MILLIGRAM
     Dates: start: 20130226, end: 20130325
  23. FLUCONAZOLE. [Concomitant]
     Active Substance: FLUCONAZOLE
     Dosage: 200 MILLIGRAM
     Dates: start: 20130423, end: 20130527
  24. GLYCERYL TRINITRATE [Concomitant]
     Active Substance: NITROGLYCERIN
     Indication: PRODUCT USED FOR UNKNOWN INDICATION
     Dosage: 0.6 MILLIGRAM
     Dates: start: 20130710, end: 20130716
  25. LEVOFLOXACIN. [Concomitant]
     Active Substance: LEVOFLOXACIN
     Indication: PRODUCT USED FOR UNKNOWN INDICATION
     Dosage: 500 MILLIGRAM
     Dates: start: 20110919, end: 20110926
  26. LEVOFLOXACIN. [Concomitant]
     Active Substance: LEVOFLOXACIN
     Dosage: 500 MILLIGRAM
     Dates: start: 20111017, end: 20111027
  27. LEVOFLOXACIN. [Concomitant]
     Active Substance: LEVOFLOXACIN
     Dosage: 500 MILLIGRAM
     Dates: start: 20120814, end: 20120910
  28. FILGRASTIM [Suspect]
     Active Substance: FILGRASTIM
     Dosage: UNK
     Route: 065
     Dates: start: 20120109, end: 20120119
  29. FILGRASTIM [Suspect]
     Active Substance: FILGRASTIM
     Dosage: UNK
     Route: 065
     Dates: start: 20120814, end: 20120814
  30. FILGRASTIM [Suspect]
     Active Substance: FILGRASTIM
     Dosage: UNK
     Route: 065
     Dates: start: 20130702, end: 20130702
  31. DECITABINE. [Concomitant]
     Active Substance: DECITABINE
     Indication: PRODUCT USED FOR UNKNOWN INDICATION
     Dosage: 20 UNK
     Dates: start: 20110919, end: 20110923
  32. DECITABINE. [Concomitant]
     Active Substance: DECITABINE
     Dosage: 20 UNK
     Dates: start: 20111114, end: 20111118
  33. DECITABINE. [Concomitant]
     Active Substance: DECITABINE
     Dosage: 20 UNK
     Dates: start: 20120109, end: 20120113
  34. DECITABINE. [Concomitant]
     Active Substance: DECITABINE
     Dosage: 20 UNK
     Dates: start: 20120206, end: 20120210
  35. DECITABINE. [Concomitant]
     Active Substance: DECITABINE
     Dosage: 20 UNK
     Dates: start: 20120717, end: 20120721
  36. DECITABINE. [Concomitant]
     Active Substance: DECITABINE
     Dosage: 20 UNK
     Dates: start: 20130304, end: 20130304
  37. DECITABINE. [Concomitant]
     Active Substance: DECITABINE
     Dosage: 20 UNK
     Dates: start: 20130528, end: 20130601
  38. FLUCONAZOLE. [Concomitant]
     Active Substance: FLUCONAZOLE
     Dosage: 200 MILLIGRAM
     Dates: start: 20111212, end: 20120108
  39. FLUCONAZOLE. [Concomitant]
     Active Substance: FLUCONAZOLE
     Dosage: 200 MILLIGRAM
     Dates: start: 20130129, end: 20130226
  40. FLUCONAZOLE. [Concomitant]
     Active Substance: FLUCONAZOLE
     Dosage: 200 MILLIGRAM
     Dates: start: 20130326, end: 20130422
  41. FLUCONAZOLE. [Concomitant]
     Active Substance: FLUCONAZOLE
     Dosage: 200 MILLIGRAM
     Dates: start: 20130709, end: 20130819
  42. LEVOFLOXACIN. [Concomitant]
     Active Substance: LEVOFLOXACIN
     Dosage: 500 MILLIGRAM
     Dates: start: 20111212, end: 20120108
  43. MAGNESIUM OXIDE. [Concomitant]
     Active Substance: MAGNESIUM OXIDE
     Indication: PRODUCT USED FOR UNKNOWN INDICATION
     Dosage: 500 MILLIGRAM
     Dates: start: 20120320
  44. FILGRASTIM [Suspect]
     Active Substance: FILGRASTIM
     Dosage: UNK
     Route: 065
     Dates: start: 20130129, end: 20130129
  45. FILGRASTIM [Suspect]
     Active Substance: FILGRASTIM
     Dosage: UNK
     Route: 065
     Dates: start: 20130521, end: 20130521
  46. DECITABINE. [Concomitant]
     Active Substance: DECITABINE
     Dosage: 20 UNK
     Dates: start: 20120410, end: 20120414
  47. DECITABINE. [Concomitant]
     Active Substance: DECITABINE
     Dosage: 20 UNK
     Dates: start: 20120820, end: 20120820
  48. DECITABINE. [Concomitant]
     Active Substance: DECITABINE
     Dosage: 20 UNK
     Dates: start: 20130709, end: 20130713
  49. FLUCONAZOLE. [Concomitant]
     Active Substance: FLUCONAZOLE
     Dosage: 200 MILLIGRAM
     Dates: start: 20120911, end: 20121008
  50. FLUCONAZOLE. [Concomitant]
     Active Substance: FLUCONAZOLE
     Dosage: 200 MILLIGRAM
     Dates: start: 20130528, end: 20130708
  51. LEVOFLOXACIN. [Concomitant]
     Active Substance: LEVOFLOXACIN
     Dosage: 500 MILLIGRAM
     Dates: start: 20111114, end: 20111211
  52. LEVOFLOXACIN. [Concomitant]
     Active Substance: LEVOFLOXACIN
     Dosage: 500 MILLIGRAM
     Dates: start: 20121106, end: 20121203
  53. LEVOFLOXACIN. [Concomitant]
     Active Substance: LEVOFLOXACIN
     Dosage: 500 MILLIGRAM
     Dates: start: 20130423, end: 20130527
  54. PARACETAMOL [Concomitant]
     Active Substance: ACETAMINOPHEN
     Indication: PRODUCT USED FOR UNKNOWN INDICATION
     Dosage: 3900 MILLIGRAM
     Dates: start: 20110915, end: 20110926
  55. PROPACETAMOL [Concomitant]
     Active Substance: PROPACETAMOL
     Indication: PRODUCT USED FOR UNKNOWN INDICATION
     Dosage: 1 UNK
     Dates: start: 20120412, end: 20120412
  56. FILGRASTIM [Suspect]
     Active Substance: FILGRASTIM
     Dosage: UNK
     Route: 065
     Dates: start: 20111212, end: 20111226
  57. FILGRASTIM [Suspect]
     Active Substance: FILGRASTIM
     Dosage: UNK
     Route: 065
     Dates: start: 20120508, end: 20120508
  58. DECITABINE. [Concomitant]
     Active Substance: DECITABINE
     Dosage: 20 UNK
     Dates: start: 20111212, end: 20111216
  59. DECITABINE. [Concomitant]
     Active Substance: DECITABINE
     Dosage: 20 UNK
     Dates: start: 20120305, end: 20120309
  60. DECITABINE. [Concomitant]
     Active Substance: DECITABINE
     Dosage: 20 UNK
     Dates: start: 20121106, end: 20121110
  61. FLUCONAZOLE. [Concomitant]
     Active Substance: FLUCONAZOLE
     Dosage: 200 MILLIGRAM
     Dates: start: 20111114, end: 20111211
  62. FLUCONAZOLE. [Concomitant]
     Active Substance: FLUCONAZOLE
     Dosage: 200 MILLIGRAM
     Dates: start: 20120410, end: 20120514
  63. FLUCONAZOLE. [Concomitant]
     Active Substance: FLUCONAZOLE
     Dosage: 200 MILLIGRAM
     Dates: start: 20121204, end: 20121231
  64. LEVOFLOXACIN. [Concomitant]
     Active Substance: LEVOFLOXACIN
     Dosage: 500 MILLIGRAM
     Dates: start: 20121009, end: 20121105
  65. LOPERAMIDE OXIDE [Concomitant]
     Active Substance: LOPERAMIDE OXIDE
     Indication: PRODUCT USED FOR UNKNOWN INDICATION
     Dosage: 1 MILLIGRAM
     Dates: start: 20120312, end: 20120316
  66. FILGRASTIM [Suspect]
     Active Substance: FILGRASTIM
     Dosage: UNK
     Route: 065
     Dates: start: 20111114, end: 20111201
  67. FILGRASTIM [Suspect]
     Active Substance: FILGRASTIM
     Dosage: UNK
     Route: 065
     Dates: start: 20130226, end: 20130226
  68. FILGRASTIM [Suspect]
     Active Substance: FILGRASTIM
     Dosage: UNK
     Route: 065
     Dates: start: 20130326, end: 20130326
  69. DECITABINE. [Concomitant]
     Active Substance: DECITABINE
     Dosage: 20 UNK
     Dates: start: 20120515, end: 20120519
  70. DECITABINE. [Concomitant]
     Active Substance: DECITABINE
     Dosage: 20 UNK
     Dates: start: 20120814, end: 20120814
  71. DECITABINE. [Concomitant]
     Active Substance: DECITABINE
     Dosage: 20 UNK
     Dates: start: 20121204, end: 20121208
  72. DECITABINE. [Concomitant]
     Active Substance: DECITABINE
     Dosage: 20 UNK
     Dates: start: 20130302, end: 20130302
  73. FLUCONAZOLE. [Concomitant]
     Active Substance: FLUCONAZOLE
     Dosage: 200 MILLIGRAM
     Dates: start: 20120515, end: 20120618
  74. LEVOFLOXACIN. [Concomitant]
     Active Substance: LEVOFLOXACIN
     Dosage: 500 MILLIGRAM
     Dates: start: 20120911, end: 20121008
  75. MOLSIDOMINE [Concomitant]
     Active Substance: MOLSIDOMINE
     Indication: PRODUCT USED FOR UNKNOWN INDICATION
     Dosage: 4 MILLIGRAM
     Dates: start: 20130717
  76. FILGRASTIM [Suspect]
     Active Substance: FILGRASTIM
     Indication: PRODUCT USED FOR UNKNOWN INDICATION
     Dosage: UNK
     Route: 065
     Dates: start: 20111017, end: 20111017
  77. FILGRASTIM [Suspect]
     Active Substance: FILGRASTIM
     Dosage: UNK
     Route: 065
     Dates: start: 20121009, end: 20121009
  78. FILGRASTIM [Suspect]
     Active Substance: FILGRASTIM
     Dosage: UNK
     Route: 065
     Dates: start: 20130813, end: 20130813
  79. DECITABINE. [Concomitant]
     Active Substance: DECITABINE
     Dosage: 20 UNK
     Dates: start: 20120816, end: 20120818
  80. DECITABINE. [Concomitant]
     Active Substance: DECITABINE
     Dosage: 20 UNK
     Dates: start: 20130226, end: 20130228
  81. LEVOFLOXACIN. [Concomitant]
     Active Substance: LEVOFLOXACIN
     Dosage: 500 MILLIGRAM
     Dates: start: 20121231, end: 20130129
  82. LEVOFLOXACIN. [Concomitant]
     Active Substance: LEVOFLOXACIN
     Dosage: 500 MILLIGRAM
     Dates: start: 20130129, end: 20130226
  83. LEVOFLOXACIN. [Concomitant]
     Active Substance: LEVOFLOXACIN
     Dosage: 500 MILLIGRAM
     Dates: start: 20130226, end: 20130325
  84. LEVOFLOXACIN. [Concomitant]
     Active Substance: LEVOFLOXACIN
     Dosage: 500 MILLIGRAM
     Dates: start: 20130326, end: 20130422
  85. LEVOFLOXACIN. [Concomitant]
     Active Substance: LEVOFLOXACIN
     Dosage: 500 MILLIGRAM
     Dates: start: 20130528, end: 20130708
  86. MOSAPRIDE [Concomitant]
     Active Substance: MOSAPRIDE
     Indication: PRODUCT USED FOR UNKNOWN INDICATION
     Dosage: 15 MILLIGRAM
     Dates: start: 20111017
  87. URSODEOXYCHOLIC ACID [Concomitant]
     Active Substance: URSODIOL
     Indication: PRODUCT USED FOR UNKNOWN INDICATION
     Dosage: 400 MILLIGRAM
     Route: 065
     Dates: start: 20120507
  88. FILGRASTIM [Suspect]
     Active Substance: FILGRASTIM
     Dosage: UNK
     Route: 065
     Dates: start: 20120612, end: 20120612
  89. FILGRASTIM [Suspect]
     Active Substance: FILGRASTIM
     Dosage: UNK
     Route: 065
     Dates: start: 20121106, end: 20121106
  90. FILGRASTIM [Suspect]
     Active Substance: FILGRASTIM
     Dosage: UNK
     Route: 065
     Dates: start: 20121231, end: 20121231
  91. FILGRASTIM [Suspect]
     Active Substance: FILGRASTIM
     Dosage: UNK
     Route: 065
     Dates: start: 20130625, end: 20130625
  92. DECITABINE. [Concomitant]
     Active Substance: DECITABINE
     Dosage: 20 UNK
     Dates: start: 20121009, end: 20121013
  93. DECITABINE. [Concomitant]
     Active Substance: DECITABINE
     Dosage: 20 UNK
     Dates: start: 20130105, end: 20130105
  94. DECITABINE. [Concomitant]
     Active Substance: DECITABINE
     Dosage: 20 UNK
     Dates: start: 20130423, end: 20130427
  95. DECITABINE. [Concomitant]
     Active Substance: DECITABINE
     Dosage: 20 UNK
     Dates: start: 20130820, end: 20130824
  96. FLUCONAZOLE. [Concomitant]
     Active Substance: FLUCONAZOLE
     Indication: PRODUCT USED FOR UNKNOWN INDICATION
     Dosage: 200 MILLIGRAM
     Dates: start: 20111017, end: 20111027
  97. FLUCONAZOLE. [Concomitant]
     Active Substance: FLUCONAZOLE
     Dosage: 200 MILLIGRAM
     Dates: start: 20120717, end: 20120813
  98. FLUCONAZOLE. [Concomitant]
     Active Substance: FLUCONAZOLE
     Dosage: 200 MILLIGRAM
     Dates: start: 20120814, end: 20120910
  99. LEVOFLOXACIN. [Concomitant]
     Active Substance: LEVOFLOXACIN
     Dosage: 500 MILLIGRAM
     Dates: start: 20120410, end: 20120514
  100. LEVOFLOXACIN. [Concomitant]
     Active Substance: LEVOFLOXACIN
     Dosage: 500 MILLIGRAM
     Dates: start: 20120717, end: 20120813
  101. LEVOFLOXACIN. [Concomitant]
     Active Substance: LEVOFLOXACIN
     Dosage: 500 MILLIGRAM
     Dates: start: 20121204, end: 20121231

REACTIONS (2)
  - Pancytopenia [Not Recovered/Not Resolved]
  - Arterial stenosis [Not Recovered/Not Resolved]

NARRATIVE: CASE EVENT DATE: 20130923
